FAERS Safety Report 18477298 (Version 1)
Quarter: 2020Q4

REPORT INFORMATION
  Report Type: Spontaneous
  Country: GB (occurrence: GB)
  Receive Date: 20201107
  Receipt Date: 20201107
  Transmission Date: 20210114
  Serious: Yes (Other)
  Sender: FDA-Public Use
  Company Number: GB-TEVA-2020-GB-1844914

PATIENT
  Age: 64 Year
  Sex: Female
  Weight: 87.08 kg

DRUGS (13)
  1. ACETYLSALICYLIC ACID [Concomitant]
     Active Substance: ASPIRIN
  2. TRIMBOW [Concomitant]
     Active Substance: BECLOMETHASONE DIPROPIONATE\FORMOTEROL FUMARATE\GLYCOPYRROLATE
  3. SALBUTAMOL [Concomitant]
     Active Substance: ALBUTEROL
  4. VENTOLIN [Concomitant]
     Active Substance: ALBUTEROL SULFATE
  5. TRIACETIN. [Concomitant]
     Active Substance: TRIACETIN
  6. BENDROFLUMETHIAZIDE [Concomitant]
     Active Substance: BENDROFLUMETHIAZIDE
  7. HYDROXYCHLOROQUINE [Concomitant]
     Active Substance: HYDROXYCHLOROQUINE
  8. PARACETAMOL [Concomitant]
     Active Substance: ACETAMINOPHEN
  9. AMLODIPINE [Suspect]
     Active Substance: AMLODIPINE BESYLATE
     Indication: CHEST PAIN
     Dosage: 1 DOSAGE FORMS
     Route: 048
     Dates: start: 20201001, end: 20201003
  10. ZOPICLONE [Concomitant]
     Active Substance: ZOPICLONE
  11. RAMIPRIL. [Concomitant]
     Active Substance: RAMIPRIL
  12. GABAPENTIN. [Concomitant]
     Active Substance: GABAPENTIN
  13. OMEPRAZOLE. [Concomitant]
     Active Substance: OMEPRAZOLE

REACTIONS (17)
  - Nasal congestion [Recovered/Resolved]
  - Insomnia [Recovered/Resolved]
  - Fatigue [Recovered/Resolved]
  - Somnolence [Recovered/Resolved]
  - Cough [Recovered/Resolved]
  - Palpitations [Recovered/Resolved]
  - Asthenia [Recovered/Resolved]
  - Constipation [Recovered/Resolved]
  - Sneezing [Recovered/Resolved]
  - Malaise [Recovered/Resolved]
  - Headache [Recovered/Resolved]
  - Dizziness [Recovered/Resolved]
  - Depression [Recovered/Resolved]
  - Muscle spasms [Recovered/Resolved]
  - Visual impairment [Recovered/Resolved]
  - Rhinorrhoea [Recovered/Resolved]
  - Pollakiuria [Recovered/Resolved]

NARRATIVE: CASE EVENT DATE: 20201001
